FAERS Safety Report 5105715-8 (Version None)
Quarter: 2006Q3

REPORT INFORMATION
  Report Type: 
  Country: None (occurrence: None)
  Receive Date: 20060915
  Receipt Date: 20060809
  Transmission Date: 20061208
  Serious: Yes (Death)
  Sender: FDA-Public Use
  Company Number: NL-SANOFI-SYNTHELABO-F01200601813

PATIENT
  Sex: Female

DRUGS (6)
  1. ALDACTONE [Concomitant]
     Dosage: UNK
  2. FUROSEMIDE [Concomitant]
     Dosage: UNK
  3. ERBITUX [Suspect]
     Indication: COLORECTAL CANCER
     Route: 041
     Dates: start: 20060731, end: 20060731
  4. AVASTIN [Suspect]
     Indication: COLORECTAL CANCER
     Route: 041
     Dates: start: 20060731, end: 20060731
  5. CAPECITABINE [Suspect]
     Indication: COLORECTAL CANCER
     Dosage: DAYS 1-14 (1250 MG/M2 AFTER CYCLE 6)
     Route: 048
     Dates: start: 20060731
  6. OXALIPLATIN [Suspect]
     Indication: COLORECTAL CANCER
     Route: 041
     Dates: start: 20060731, end: 20060731

REACTIONS (4)
  - DEHYDRATION [None]
  - DIARRHOEA [None]
  - MUCOSAL INFLAMMATION [None]
  - SEPSIS [None]
